FAERS Safety Report 9619258 (Version 3)
Quarter: 2013Q4

REPORT INFORMATION
  Report Type: Spontaneous
  Country: IT (occurrence: IT)
  Receive Date: 20131014
  Receipt Date: 20131217
  Transmission Date: 20140711
  Serious: Yes (Hospitalization)
  Sender: FDA-Public Use
  Company Number: IT-PFIZER INC-2013292886

PATIENT
  Age: 53 Year
  Sex: Female

DRUGS (12)
  1. XANAX [Suspect]
     Indication: DRUG ABUSE
     Dosage: 4 MG, TOTAL
     Route: 048
     Dates: start: 20130712, end: 20130712
  2. XANAX [Suspect]
     Indication: BIPOLAR DISORDER
  3. XANAX [Suspect]
     Indication: INSOMNIA
  4. SERTRALINE HCL [Suspect]
     Indication: DRUG ABUSE
     Dosage: 400 MG, TOTAL
     Route: 048
     Dates: start: 20130712, end: 20130712
  5. SERTRALINE HCL [Suspect]
     Indication: BIPOLAR DISORDER
  6. SERTRALINE HCL [Suspect]
     Indication: INSOMNIA
  7. FELISON [Suspect]
     Indication: DRUG ABUSE
     Dosage: 330 MG, TOTAL
     Route: 048
     Dates: start: 20130712, end: 20130712
  8. FELISON [Suspect]
     Indication: BIPOLAR DISORDER
  9. FELISON [Suspect]
     Indication: INSOMNIA
  10. SEROQUEL [Suspect]
     Indication: DRUG ABUSE
     Dosage: 150 MG, TOTAL
     Route: 048
     Dates: start: 20130712, end: 20130712
  11. SEROQUEL [Suspect]
     Indication: BIPOLAR DISORDER
  12. SEROQUEL [Suspect]
     Indication: INSOMNIA

REACTIONS (3)
  - Drug abuse [Recovered/Resolved]
  - Bradykinesia [Recovered/Resolved]
  - Bradyphrenia [Recovered/Resolved]
